FAERS Safety Report 5542803-6 (Version None)
Quarter: 2007Q4

REPORT INFORMATION
  Report Type: 
  Country: None (occurrence: None)
  Receive Date: 20071210
  Receipt Date: 20071128
  Transmission Date: 20080405
  Serious: Yes (Other)
  Sender: FDA-Public Use
  Company Number: US-ELI_LILLY_AND_COMPANY-US200710002410

PATIENT
  Age: 76 Year
  Sex: Female
  Weight: 47.619 kg

DRUGS (13)
  1. FORTEO [Suspect]
     Indication: OSTEOPOROTIC FRACTURE
     Dosage: UNK, DAILY (1/D)
     Dates: start: 20061101, end: 20061101
  2. FORTEO [Suspect]
     Dosage: UNK, QOD
     Dates: start: 20061101, end: 20061101
  3. FORTEO [Suspect]
     Dosage: UNK, QOD
     Dates: start: 20070201, end: 20070801
  4. FORTEO [Suspect]
     Dosage: UNK, DAILY (1/D)
     Dates: start: 20070801, end: 20071003
  5. FORTEO [Suspect]
     Dosage: UNK, UNK
     Dates: start: 20071009
  6. KLOR-CON [Concomitant]
     Dosage: UNK, DAILY (1/D)
  7. OSCAL [Concomitant]
     Dosage: UNK, DAILY (1/D)
  8. PLAVIX [Concomitant]
     Indication: PROPHYLAXIS
     Dates: start: 20061101
  9. ASPIRIN [Concomitant]
  10. LOREMIX [Concomitant]
  11. LOPRESSOR [Concomitant]
  12. NORVASC [Concomitant]
  13. HYDROCHLOROTHIAZIDE [Concomitant]

REACTIONS (4)
  - ARTERIAL DISORDER [None]
  - CARDIAC PACEMAKER INSERTION [None]
  - CORONARY ARTERY DISEASE [None]
  - HEART RATE INCREASED [None]
